FAERS Safety Report 16497645 (Version 1)
Quarter: 2019Q2

REPORT INFORMATION
  Report Type: Spontaneous
  Country: CH (occurrence: CH)
  Receive Date: 20190628
  Receipt Date: 20190628
  Transmission Date: 20190711
  Serious: Yes (Death, Hospitalization, Other)
  Sender: FDA-Public Use
  Company Number: CH-JNJFOC-20190620848

PATIENT
  Sex: Male

DRUGS (2)
  1. IMBRUVICA [Suspect]
     Active Substance: IBRUTINIB
     Indication: CHRONIC LYMPHOCYTIC LEUKAEMIA
     Route: 048
     Dates: start: 201705
  2. IMBRUVICA [Suspect]
     Active Substance: IBRUTINIB
     Route: 048
     Dates: start: 20170821

REACTIONS (7)
  - Hepatic lesion [Fatal]
  - Lung consolidation [Fatal]
  - Hospitalisation [Unknown]
  - Neutropenia [Fatal]
  - Fungal infection [Fatal]
  - Pneumonia [Unknown]
  - Splenic necrosis [Fatal]
